FAERS Safety Report 13792177 (Version 1)
Quarter: 2017Q3

REPORT INFORMATION
  Report Type: Spontaneous
  Country: US (occurrence: US)
  Receive Date: 20170725
  Receipt Date: 20170725
  Transmission Date: 20171127
  Serious: No
  Sender: FDA-Public Use
  Company Number: US-ROCHE-1945211

PATIENT
  Age: 55 Year
  Sex: Female
  Weight: 70.37 kg

DRUGS (4)
  1. BENADRYL [Concomitant]
     Active Substance: DIPHENHYDRAMINE HYDROCHLORIDE
     Dosage: ONE TIME DOSE ;ONGOING: NO
     Route: 048
     Dates: start: 20170530, end: 20170530
  2. OCREVUS [Suspect]
     Active Substance: OCRELIZUMAB
     Indication: MULTIPLE SCLEROSIS
     Dosage: THEN EVERY 6 MONTHS ;ONGOING: YES
     Route: 042
     Dates: start: 20170530
  3. TYLENOL [Concomitant]
     Active Substance: ACETAMINOPHEN
     Indication: HEADACHE
     Dosage: ONE TIME DOSE ;ONGOING: NO
     Route: 048
     Dates: start: 20170530, end: 20170530
  4. IBUPROFEN. [Concomitant]
     Active Substance: IBUPROFEN
     Indication: HEADACHE
     Dosage: ONE TIME DOSE ;ONGOING: NO
     Route: 048

REACTIONS (6)
  - Nausea [Not Recovered/Not Resolved]
  - Headache [Not Recovered/Not Resolved]
  - Eye disorder [Not Recovered/Not Resolved]
  - Flushing [Recovered/Resolved]
  - Anxiety [Not Recovered/Not Resolved]
  - Hyperhidrosis [Recovered/Resolved]

NARRATIVE: CASE EVENT DATE: 20170530
